FAERS Safety Report 6165398-5 (Version None)
Quarter: 2009Q2

REPORT INFORMATION
  Report Type: 
  Country: None (occurrence: None)
  Receive Date: 20090423
  Receipt Date: 20090414
  Transmission Date: 20091009
  Serious: Yes (Hospitalization)
  Sender: FDA-Public Use
  Company Number: CH-PFIZER INC-2009198365

PATIENT

DRUGS (5)
  1. ALDACTONE [Suspect]
     Dosage: 25 MG, 1X/DAY
     Route: 048
  2. NEXIUM [Suspect]
     Dosage: 40 MG, 1X/DAY
     Route: 048
  3. ENDOXAN [Suspect]
     Indication: RHEUMATOID VASCULITIS
     Dosage: UNK
     Dates: start: 20090108, end: 20090209
  4. NORVASC [Concomitant]
     Dosage: 10 MG, 1X/DAY
     Route: 048
  5. SPIRICORT [Concomitant]
     Dosage: 40 MG, 1X/DAY
     Route: 048

REACTIONS (3)
  - BLOOD OSMOLARITY DECREASED [None]
  - HYPONATRAEMIA [None]
  - INAPPROPRIATE ANTIDIURETIC HORMONE SECRETION [None]
